FAERS Safety Report 20733098 (Version 1)
Quarter: 2022Q2

REPORT INFORMATION
  Report Type: Spontaneous
  Country: US (occurrence: US)
  Receive Date: 20220421
  Receipt Date: 20220421
  Transmission Date: 20220721
  Serious: Yes (Other)
  Sender: FDA-Public Use
  Company Number: US-BRISTOL-MYERS SQUIBB COMPANY-2022-019483

PATIENT
  Age: 73 Year
  Sex: Male
  Weight: 79.8 kg

DRUGS (1)
  1. REVLIMID [Suspect]
     Active Substance: LENALIDOMIDE
     Indication: Plasma cell myeloma
     Dosage: DAILY 21D ON 7D OFF
     Route: 048
     Dates: start: 20170703

REACTIONS (1)
  - Thrombosis [Recovering/Resolving]
